FAERS Safety Report 4536763-4 (Version None)
Quarter: 2004Q4

REPORT INFORMATION
  Report Type: 
  Country: None (occurrence: None)
  Receive Date: 20041220
  Receipt Date: 20041206
  Transmission Date: 20050328
  Serious: Yes (Hospitalization)
  Sender: FDA-Public Use
  Company Number: 00/00585-FRA

PATIENT
  Age: 63 Year
  Sex: Male
  Weight: 75 kg

DRUGS (3)
  1. FLUDARABINE + CYCLOPHOSPHAMIDE (FLUDARABINE PHOSPHATE) [Suspect]
     Indication: CHRONIC LYMPHOCYTIC LEUKAEMIA
     Dosage: RESPECTIVELY 30 MG/M2 AND 200 MG, ORAL
     Route: 048
     Dates: start: 20000411, end: 20000803
  2. ESBERIVEN (HEPARINE, FLAVONOIDS) [Concomitant]
  3. POTASSIUM CHLORIDE [Concomitant]

REACTIONS (3)
  - HAEMOLYTIC ANAEMIA [None]
  - LEUKOPENIA [None]
  - NEUTROPENIA [None]
